FAERS Safety Report 6543363-3 (Version None)
Quarter: 2010Q1

REPORT INFORMATION
  Report Type: 
  Country: None (occurrence: None)
  Receive Date: 20100120
  Receipt Date: 20100114
  Transmission Date: 20100710
  Serious: Yes (Death, Life-Threatening)
  Sender: FDA-Public Use
  Company Number: JP-ROCHE-637624

PATIENT
  Sex: Male
  Weight: 46 kg

DRUGS (5)
  1. AVASTIN [Suspect]
     Indication: COLON CANCER
     Route: 041
     Dates: start: 20090402, end: 20090520
  2. ELPLAT [Concomitant]
     Route: 041
     Dates: start: 20090310, end: 20090520
  3. ISOVORIN [Concomitant]
     Route: 041
     Dates: start: 20090310, end: 20090521
  4. 5-FU [Concomitant]
     Route: 040
     Dates: start: 20090310, end: 20090521
  5. 5-FU [Concomitant]
     Route: 040
     Dates: start: 20090310, end: 20090522

REACTIONS (9)
  - ABDOMINAL ABSCESS [None]
  - DEPRESSED LEVEL OF CONSCIOUSNESS [None]
  - DISEASE PROGRESSION [None]
  - DRUG INEFFECTIVE [None]
  - GENERAL PHYSICAL HEALTH DETERIORATION [None]
  - LARGE INTESTINE PERFORATION [None]
  - MALIGNANT NEOPLASM PROGRESSION [None]
  - NEUTROPENIA [None]
  - WOUND DEHISCENCE [None]
